FAERS Safety Report 5380433-X (Version None)
Quarter: 2007Q3

REPORT INFORMATION
  Report Type: 
  Country: None (occurrence: None)
  Receive Date: 20070706
  Receipt Date: 20070529
  Transmission Date: 20080115
  Serious: No
  Sender: FDA-Public Use
  Company Number: A0653235A

PATIENT
  Age: 59 Year
  Sex: Female

DRUGS (8)
  1. TYKERB [Suspect]
     Indication: BREAST CANCER
     Dosage: 5TAB PER DAY
     Route: 048
     Dates: start: 20070427
  2. XELODA [Concomitant]
  3. VERAPAMIL [Concomitant]
  4. CELEBREX [Concomitant]
  5. DIGITEK [Concomitant]
  6. POTASSIUM ACETATE [Concomitant]
  7. WARFARIN SODIUM [Concomitant]
  8. LORAZEPAM [Concomitant]

REACTIONS (3)
  - DRY SKIN [None]
  - FATIGUE [None]
  - RASH [None]
